FAERS Safety Report 5636315-9 (Version None)
Quarter: 2008Q1

REPORT INFORMATION
  Report Type: 
  Country: None (occurrence: None)
  Receive Date: 20080225
  Receipt Date: 20080225
  Transmission Date: 20080703
  Serious: Yes (Disabling)
  Sender: FDA-Public Use
  Company Number: None

PATIENT
  Age: 61 Year
  Sex: Male
  Weight: 64.8644 kg

DRUGS (10)
  1. HEPARIN [Suspect]
     Indication: CORONARY ARTERY BYPASS
     Dosage: 40,000 UNITS ONCE IV BOLUS; ONCE
     Route: 040
  2. AMINOCAPROIC ACID [Suspect]
     Dosage: 5000 MG ONCE IV BOLUS; ONCE + DRIP
     Route: 040
  3. NORVASC [Concomitant]
  4. LIPITOR [Concomitant]
  5. ZETIA [Concomitant]
  6. COREG [Concomitant]
  7. CATAPRES [Concomitant]
  8. ASPIRIN [Concomitant]
  9. NICODERM [Concomitant]
  10. PLAVIX [Concomitant]

REACTIONS (1)
  - PROCEDURAL HYPOTENSION [None]
